FAERS Safety Report 8664472 (Version 9)
Quarter: 2015Q1

REPORT INFORMATION
  Report Type: Spontaneous
  Country: US (occurrence: US)
  Receive Date: 20120713
  Receipt Date: 20150305
  Transmission Date: 20150721
  Serious: Yes (Other)
  Sender: FDA-Public Use
  Company Number: US-ASTRAZENECA-2012SE20543

PATIENT
  Age: 80 Year
  Sex: Female
  Weight: 71.7 kg

DRUGS (26)
  1. CRESTOR [Suspect]
     Active Substance: ROSUVASTATIN CALCIUM
     Indication: HYPERLIPIDAEMIA
     Route: 048
     Dates: start: 2012, end: 20130606
  2. CRESTOR [Suspect]
     Active Substance: ROSUVASTATIN CALCIUM
     Indication: BLOOD CHOLESTEROL INCREASED
     Route: 048
  3. CRESTOR [Suspect]
     Active Substance: ROSUVASTATIN CALCIUM
     Indication: HYPERLIPIDAEMIA
     Route: 048
  4. NAPROSYN [Concomitant]
     Active Substance: NAPROXEN
  5. VITAMIN D [Concomitant]
     Active Substance: CHOLECALCIFEROL
     Indication: MUSCLE SPASMS
     Dosage: DAILY
     Route: 048
  6. CRESTOR [Suspect]
     Active Substance: ROSUVASTATIN CALCIUM
     Indication: HYPERLIPIDAEMIA
     Route: 048
     Dates: start: 201403
  7. CRESTOR [Suspect]
     Active Substance: ROSUVASTATIN CALCIUM
     Indication: BLOOD CHOLESTEROL INCREASED
     Route: 048
  8. OMEPRAZOLE. [Suspect]
     Active Substance: OMEPRAZOLE
     Indication: GASTROOESOPHAGEAL REFLUX DISEASE
     Route: 048
  9. CRESTOR [Suspect]
     Active Substance: ROSUVASTATIN CALCIUM
     Indication: BLOOD CHOLESTEROL INCREASED
     Route: 048
     Dates: start: 2012, end: 20130606
  10. INSULIN [Concomitant]
     Active Substance: INSULIN NOS
  11. HUMALOG [Concomitant]
     Active Substance: INSULIN LISPRO
     Indication: DIABETES MELLITUS
     Dosage: 1 UNIT PER 10G CARBS TID
     Route: 058
  12. CRESTOR [Suspect]
     Active Substance: ROSUVASTATIN CALCIUM
     Indication: HYPERLIPIDAEMIA
     Route: 048
     Dates: start: 201309
  13. OMEPRAZOLE. [Suspect]
     Active Substance: OMEPRAZOLE
     Indication: IRRITABLE BOWEL SYNDROME
     Route: 048
  14. OMEPRAZOLE. [Suspect]
     Active Substance: OMEPRAZOLE
     Indication: HIATUS HERNIA
     Route: 048
  15. METFORMIN [Concomitant]
     Active Substance: METFORMIN HYDROCHLORIDE
     Indication: DIABETES MELLITUS
     Route: 048
  16. ASA [Concomitant]
     Active Substance: ASPIRIN
     Indication: DIABETES MELLITUS
     Route: 048
  17. CRESTOR [Suspect]
     Active Substance: ROSUVASTATIN CALCIUM
     Indication: BLOOD CHOLESTEROL INCREASED
     Route: 048
     Dates: start: 201309
  18. CRESTOR [Suspect]
     Active Substance: ROSUVASTATIN CALCIUM
     Indication: BLOOD CHOLESTEROL INCREASED
     Route: 048
     Dates: start: 201403
  19. CRESTOR [Suspect]
     Active Substance: ROSUVASTATIN CALCIUM
     Indication: BLOOD CHOLESTEROL INCREASED
     Route: 048
  20. CRESTOR [Suspect]
     Active Substance: ROSUVASTATIN CALCIUM
     Indication: HYPERLIPIDAEMIA
     Route: 048
  21. CRESTOR [Suspect]
     Active Substance: ROSUVASTATIN CALCIUM
     Indication: HYPERLIPIDAEMIA
     Route: 048
  22. VITAMIN B12 [Concomitant]
     Active Substance: CYANOCOBALAMIN
     Indication: ANAEMIA
     Route: 048
     Dates: start: 2011
  23. LISINOPRIL. [Suspect]
     Active Substance: LISINOPRIL
     Indication: PROPHYLAXIS
     Route: 048
  24. LANTUS [Concomitant]
     Active Substance: INSULIN GLARGINE
     Indication: DIABETES MELLITUS
     Dosage: 25 UNITS AT NIGHT
     Route: 058
  25. ANTICHOLESTEROL MEDICATION [Concomitant]
  26. TYLENOL [Concomitant]
     Active Substance: ACETAMINOPHEN

REACTIONS (28)
  - Fall [Unknown]
  - Back pain [Unknown]
  - Drug dose omission [Unknown]
  - Fall [Unknown]
  - Gastroenteritis viral [Recovered/Resolved]
  - Weight decreased [Not Recovered/Not Resolved]
  - Muscle spasms [Unknown]
  - Rib fracture [Unknown]
  - Hypoacusis [Not Recovered/Not Resolved]
  - Diabetic neuropathy [Unknown]
  - Agitation [Unknown]
  - Feeling abnormal [Unknown]
  - Myalgia [Recovered/Resolved]
  - Abdominal discomfort [Unknown]
  - Off label use [Unknown]
  - Hypersensitivity [Unknown]
  - Osteoarthritis [Unknown]
  - Memory impairment [Unknown]
  - Arthralgia [Recovered/Resolved]
  - Blood cholesterol increased [Recovering/Resolving]
  - Nervousness [Unknown]
  - Macular degeneration [Not Recovered/Not Resolved]
  - Fatigue [Unknown]
  - Dementia [Unknown]
  - Body height decreased [Not Recovered/Not Resolved]
  - Dyspnoea [Unknown]
  - Malaise [Unknown]
  - Pain [Unknown]

NARRATIVE: CASE EVENT DATE: 2012
